FAERS Safety Report 11802192 (Version 4)
Quarter: 2016Q1

REPORT INFORMATION
  Report Type: Spontaneous
  Country: US (occurrence: US)
  Receive Date: 20151204
  Receipt Date: 20160222
  Transmission Date: 20160525
  Serious: Yes (Hospitalization, Other)
  Sender: FDA-Public Use
  Company Number: US-PFIZER INC-2015421910

PATIENT
  Age: 31 Year
  Sex: Male
  Weight: 132 kg

DRUGS (9)
  1. CHANTIX [Suspect]
     Active Substance: VARENICLINE TARTRATE
     Dosage: 0.5 MG, 1X/DAY
     Route: 048
     Dates: start: 20151110, end: 20151123
  2. NEURONTIN [Suspect]
     Active Substance: GABAPENTIN
     Indication: NEURALGIA
  3. GABAPENTIN. [Suspect]
     Active Substance: GABAPENTIN
     Indication: NEURALGIA
     Dosage: 100 MG, THREE TIMES A DAY, AS NEEDED
     Route: 048
     Dates: start: 20151101
  4. NEURONTIN [Suspect]
     Active Substance: GABAPENTIN
     Indication: PAIN
     Dosage: 300 MG, UNK
  5. CHANTIX [Suspect]
     Active Substance: VARENICLINE TARTRATE
     Dosage: 0.5 MG, 2X/DAY
     Route: 048
     Dates: start: 20151124, end: 20151201
  6. GABAPENTIN. [Suspect]
     Active Substance: GABAPENTIN
     Indication: PAIN
  7. ALPRAZOLAM. [Concomitant]
     Active Substance: ALPRAZOLAM
     Dosage: 0.5 MG, UNK
     Route: 048
  8. CHANTIX [Suspect]
     Active Substance: VARENICLINE TARTRATE
     Indication: SMOKING CESSATION THERAPY
     Dosage: 1 MG, 2X/DAY
     Route: 048
     Dates: start: 2015, end: 2015
  9. XANAX [Concomitant]
     Active Substance: ALPRAZOLAM
     Indication: ANXIETY
     Dosage: 0.25 TABLET , TWICE A DAY, P.R.N. AT BEDTIME
     Route: 048
     Dates: start: 20151101

REACTIONS (16)
  - Vomiting [Unknown]
  - Suicidal ideation [Unknown]
  - Irritability [Unknown]
  - Pharyngeal oedema [Unknown]
  - Suicide attempt [Unknown]
  - Aggression [Unknown]
  - Hyperhidrosis [Unknown]
  - Malaise [Unknown]
  - Memory impairment [Unknown]
  - Feeling abnormal [Unknown]
  - Paranoia [Recovering/Resolving]
  - Mental disorder [Unknown]
  - Nightmare [Unknown]
  - Palpitations [Unknown]
  - Anxiety [Unknown]
  - Abnormal behaviour [Unknown]

NARRATIVE: CASE EVENT DATE: 2015
